FAERS Safety Report 7958744-0 (Version None)
Quarter: 2011Q4

REPORT INFORMATION
  Report Type: 
  Country: None (occurrence: None)
  Receive Date: 20111206
  Receipt Date: 20111128
  Transmission Date: 20120403
  Serious: Yes (Other)
  Sender: FDA-Public Use
  Company Number: US-JNJFOC-20110910007

PATIENT
  Sex: Female
  Weight: 122.6 kg

DRUGS (5)
  1. WARFARIN SODIUM [Concomitant]
     Indication: ANTICOAGULANT THERAPY
     Dates: start: 20110926, end: 20110926
  2. XARELTO [Suspect]
     Route: 048
     Dates: start: 20110926, end: 20110928
  3. HEPARIN LOCK-FLUSH [Suspect]
     Indication: FLUSHING
     Route: 042
     Dates: end: 20110920
  4. WARFARIN SODIUM [Concomitant]
     Dates: start: 20110922, end: 20110922
  5. XARELTO [Suspect]
     Indication: THROMBOSIS PROPHYLAXIS
     Route: 048
     Dates: start: 20110909, end: 20110918

REACTIONS (1)
  - HEPARIN-INDUCED THROMBOCYTOPENIA [None]
